FAERS Safety Report 5490485-4 (Version None)
Quarter: 2007Q4

REPORT INFORMATION
  Report Type: 
  Country: None (occurrence: None)
  Receive Date: 20071017
  Receipt Date: 20071017
  Transmission Date: 20080405
  Serious: Yes (Disabling)
  Sender: FDA-Public Use
  Company Number: None

PATIENT
  Age: 64 Year
  Sex: Female
  Weight: 58.514 kg

DRUGS (2)
  1. PEPCID AC [Suspect]
     Indication: DYSPEPSIA
     Dates: start: 20071015, end: 20071015
  2. PEPCID AC [Suspect]
     Indication: HIATUS HERNIA
     Dates: start: 20071015, end: 20071015

REACTIONS (2)
  - DYSPNOEA [None]
  - PRURITUS [None]
